FAERS Safety Report 7074562-2 (Version None)
Quarter: 2010Q4

REPORT INFORMATION
  Report Type: 
  Country: None (occurrence: None)
  Receive Date: 20101029
  Receipt Date: 20101018
  Transmission Date: 20110411
  Serious: Yes (Hospitalization)
  Sender: FDA-Public Use
  Company Number: US-WATSON-2010-14074

PATIENT
  Age: 25 Year
  Sex: Male

DRUGS (1)
  1. ACYCLOVIR [Suspect]
     Indication: HERPES ZOSTER
     Dosage: 800 MG, 5 TIMES DAILY
     Route: 048

REACTIONS (2)
  - NEPHROLITHIASIS [None]
  - NEPHROPATHY TOXIC [None]
